FAERS Safety Report 9669240 (Version 1)
Quarter: 2013Q4

REPORT INFORMATION
  Report Type: Spontaneous
  Country: JP (occurrence: None)
  Receive Date: 20131101
  Receipt Date: 20131101
  Transmission Date: 20140711
  Serious: Yes (Life-Threatening)
  Sender: FDA-Public Use
  Company Number: DAV0AE-MTX-13-60

PATIENT
  Age: 76 Year
  Sex: Female

DRUGS (1)
  1. METHOTREXATE [Suspect]
     Indication: RHEUMATOID ARTHRITIS
     Dosage: 4MG/WK/4YR/ 8MG/WK/1.5YR

REACTIONS (4)
  - Epstein-Barr virus associated lymphoma [None]
  - Angiocentric lymphoma [None]
  - Epstein-Barr virus test positive [None]
  - Histology abnormal [None]
